FAERS Safety Report 19272603 (Version 2)
Quarter: 2021Q2

REPORT INFORMATION
  Report Type: Report from Study
  Country: US (occurrence: US)
  Receive Date: 20210518
  Receipt Date: 20210524
  Transmission Date: 20210717
  Serious: No
  Sender: FDA-Public Use
  Company Number: NVSC2021US103664

PATIENT
  Sex: Male

DRUGS (2)
  1. MELATONIN [Concomitant]
     Active Substance: MELATONIN
     Indication: RESTLESS LEGS SYNDROME
     Dosage: UNK
     Route: 065
  2. ENTRESTO [Suspect]
     Active Substance: SACUBITRIL\VALSARTAN
     Indication: CARDIAC FAILURE
     Dosage: UNK
     Route: 065
     Dates: start: 202010

REACTIONS (1)
  - Hypotension [Unknown]
